FAERS Safety Report 9797588 (Version 1)
Quarter: 2014Q1

REPORT INFORMATION
  Report Type: Report from Study
  Country: US (occurrence: US)
  Receive Date: 20140106
  Receipt Date: 20140106
  Transmission Date: 20141002
  Serious: Yes (Hospitalization)
  Sender: FDA-Public Use
  Company Number: US-ROCHE-1313018

PATIENT
  Age: 89 Year
  Sex: Male
  Weight: 82.9 kg

DRUGS (2)
  1. BONIVA [Suspect]
     Indication: SENILE OSTEOPOROSIS
     Dosage: 3MG/ML
     Route: 042
     Dates: start: 201110, end: 20120424
  2. JANUVIA [Concomitant]
     Indication: TYPE 2 DIABETES MELLITUS
     Dosage: 50MG DAILY
     Route: 065

REACTIONS (14)
  - Cellulitis [Unknown]
  - Oesophageal ulcer [Unknown]
  - Hypoaesthesia [Unknown]
  - Malaise [Unknown]
  - Weight decreased [Unknown]
  - Local swelling [Unknown]
  - Myalgia [Unknown]
  - Amnesia [Unknown]
  - Fatigue [Unknown]
  - Arthralgia [Unknown]
  - Gait disturbance [Unknown]
  - Constipation [Unknown]
  - Pollakiuria [Unknown]
  - Paraesthesia [Unknown]
